FAERS Safety Report 7821145-X (Version None)
Quarter: 2011Q4

REPORT INFORMATION
  Report Type: 
  Country: None (occurrence: None)
  Receive Date: 20111018
  Receipt Date: 20111012
  Transmission Date: 20120403
  Serious: Yes (Death, Hospitalization)
  Sender: FDA-Public Use
  Company Number: US-GILEAD-2011-0043888

PATIENT

DRUGS (2)
  1. LETAIRIS [Suspect]
     Indication: PORTOPULMONARY HYPERTENSION
     Dosage: 10 MG, UNK
     Route: 048
     Dates: start: 20100317
  2. LETAIRIS [Suspect]
     Indication: HIV INFECTION

REACTIONS (2)
  - BILE DUCT CANCER [None]
  - RENAL FAILURE ACUTE [None]
